FAERS Safety Report 6670877-8 (Version None)
Quarter: 2010Q2

REPORT INFORMATION
  Report Type: 
  Country: None (occurrence: None)
  Receive Date: 20100406
  Receipt Date: 20100406
  Transmission Date: 20101027
  Serious: Yes (Death, Hospitalization)
  Sender: FDA-Public Use
  Company Number: None

PATIENT
  Sex: Male
  Weight: 65.1 kg

DRUGS (6)
  1. CYCLOPHOSPHAMIDE [Suspect]
     Dosage: 3520 MG
     Dates: end: 20100305
  2. CYTARABINE [Suspect]
     Dosage: 2112 MG
     Dates: end: 20100315
  3. MERCAPTOPURINE [Suspect]
     Dosage: 3000 MG
     Dates: end: 20100318
  4. METHOTREXATE [Suspect]
     Dosage: 60 MG
     Dates: end: 20100225
  5. PEG-L ASPARAGINASE (K-H) [Suspect]
     Dosage: 17600 MG
     Dates: end: 20100319
  6. VINCRISTINE SULFATE [Suspect]
     Dosage: 8 MG
     Dates: end: 20100324

REACTIONS (9)
  - CARDIAC ARREST [None]
  - HYPOTENSION [None]
  - MALAISE [None]
  - MULTI-ORGAN FAILURE [None]
  - NEUTROPENIC SEPSIS [None]
  - PAIN IN EXTREMITY [None]
  - PANCYTOPENIA [None]
  - PNEUMONIA [None]
  - SEPTIC SHOCK [None]
